FAERS Safety Report 8816863 (Version 1)
Quarter: 2012Q4

REPORT INFORMATION
  Report Type: Spontaneous
  Country: US (occurrence: None)
  Receive Date: 20121002
  Receipt Date: 20121002
  Transmission Date: 20130627
  Serious: Yes (Death)
  Sender: FDA-Public Use
  Company Number: None

PATIENT
  Age: 84 Year
  Sex: Female

DRUGS (8)
  1. REVLIMID [Suspect]
     Indication: MYELODYSPLASTIC SYNDROME
     Dosage: 5mg qod orally
     Route: 048
     Dates: start: 201110, end: 201112
  2. PREDNISONE [Concomitant]
  3. CLONIDINE [Concomitant]
  4. VERAPAMIL [Concomitant]
  5. POTASSIUM TABLETS [Concomitant]
  6. METHOTREXATE [Concomitant]
  7. ATENOLOL [Concomitant]
  8. LISINOPRIL [Concomitant]

REACTIONS (1)
  - Gastrointestinal haemorrhage [None]
